FAERS Safety Report 8867305 (Version 1)
Quarter: 2012Q4

REPORT INFORMATION
  Report Type: 
  Country: US (occurrence: US)
  Receive Date: 20121025
  Receipt Date: 20121025
  Transmission Date: 20130627
  Serious: No
  Sender: FDA-Public Use
  Company Number: US-AMGEN-USASP2012015866

PATIENT
  Age: 50 Year
  Sex: Female
  Weight: 74.83 kg

DRUGS (13)
  1. ENBREL [Suspect]
     Indication: PSORIASIS
     Dosage: 50 mg, qwk
  2. METHOTREXATE [Concomitant]
     Dosage: 2.5 mg, UNK
  3. NAPROSYN /00256201/ [Concomitant]
     Dosage: 250 mg, UNK
  4. MISOPROSTOL [Concomitant]
     Dosage: 100 mug, UNK
  5. METFORMIN [Concomitant]
     Dosage: 850 mg, UNK
  6. ATENOLOL [Concomitant]
     Dosage: 50 mg, UNK
  7. LOSARTAN POTASSIUM [Concomitant]
     Dosage: 100 mg, UNK
  8. BACLOFEN [Concomitant]
     Dosage: 10 mg, UNK
  9. CYMBALTA [Concomitant]
     Dosage: 20 mg, UNK
  10. FOLIC ACID [Concomitant]
     Dosage: 5 mg, UNK
  11. CALCIUM MAGNESIUM [Concomitant]
     Dosage: UNK
  12. LYRICA [Concomitant]
     Dosage: 100 mg, UNK
  13. OMEGA 3-6-9 [Concomitant]
     Dosage: UNK

REACTIONS (2)
  - Swelling face [Unknown]
  - Injection site pruritus [Unknown]
